FAERS Safety Report 22050774 (Version 1)
Quarter: 2023Q1

REPORT INFORMATION
  Report Type: Spontaneous
  Country: US (occurrence: None)
  Receive Date: 20230228
  Receipt Date: 20230228
  Transmission Date: 20230418
  Serious: Yes (Life-Threatening, Disabling, Other)
  Sender: FDA-Public Use
  Company Number: None

PATIENT
  Age: 70 Year
  Sex: Male
  Weight: 99.79 kg

DRUGS (1)
  1. VENLAFAXINE HYDROCHLORIDE [Suspect]
     Active Substance: VENLAFAXINE HYDROCHLORIDE
     Indication: Product used for unknown indication
     Dates: start: 20220408, end: 20230216

REACTIONS (15)
  - Aggression [None]
  - Anger [None]
  - Depression [None]
  - Panic attack [None]
  - Irritability [None]
  - Mania [None]
  - Suicidal ideation [None]
  - Anxiety [None]
  - Agitation [None]
  - Restlessness [None]
  - Insomnia [None]
  - Abnormal behaviour [None]
  - Mood altered [None]
  - Toxicity to various agents [None]
  - Impulsive behaviour [None]

NARRATIVE: CASE EVENT DATE: 20220408
